FAERS Safety Report 17482914 (Version 1)
Quarter: 2020Q1

REPORT INFORMATION
  Report Type: Spontaneous
  Country: US (occurrence: US)
  Receive Date: 20200228
  Receipt Date: 20200228
  Transmission Date: 20200409
  Serious: Yes (Other)
  Sender: FDA-Public Use
  Company Number: None

PATIENT

DRUGS (2)
  1. EPINASTINE. [Suspect]
     Active Substance: EPINASTINE HYDROCHLORIDE
  2. ZADITOR [Suspect]
     Active Substance: KETOTIFEN FUMARATE

REACTIONS (2)
  - Eye pain [None]
  - Eye irritation [None]
